FAERS Safety Report 8380615-9 (Version None)
Quarter: 2012Q2

REPORT INFORMATION
  Report Type: 
  Country: None (occurrence: None)
  Receive Date: 20120523
  Receipt Date: 20120511
  Transmission Date: 20120825
  Serious: Yes (Hospitalization)
  Sender: FDA-Public Use
  Company Number: US-ACTELION-A-US2012-63793

PATIENT

DRUGS (5)
  1. EPOPROSTENOL SODIUM [Suspect]
     Dosage: 25 NG/KG, PER MIN
     Route: 042
  2. EPOPROSTENOL SODIUM [Suspect]
     Indication: PULMONARY ARTERIAL HYPERTENSION
     Dosage: 8 NG/KG, PER MIN
     Route: 042
     Dates: start: 20110517
  3. TRACLEER [Suspect]
     Indication: PULMONARY ARTERIAL HYPERTENSION
     Dosage: 125 MG, BID
     Route: 048
     Dates: start: 20100901
  4. SILDENAFIL [Concomitant]
     Dosage: UNK
     Dates: start: 20100329
  5. TRACLEER [Suspect]
     Dosage: 62.5 MG, BID
     Route: 048
     Dates: start: 20100802, end: 20100901

REACTIONS (9)
  - SOMNOLENCE [None]
  - HAEMOGLOBIN DECREASED [None]
  - GASTROINTESTINAL HAEMORRHAGE [None]
  - PALLOR [None]
  - FATIGUE [None]
  - HAEMATOCRIT DECREASED [None]
  - TRANSFUSION [None]
  - MINERAL SUPPLEMENTATION [None]
  - ANAEMIA [None]
